FAERS Safety Report 6529016-6 (Version None)
Quarter: 2009Q4

REPORT INFORMATION
  Report Type: 
  Country: None (occurrence: None)
  Receive Date: 20091229
  Receipt Date: 20091221
  Transmission Date: 20100525
  Serious: Yes (Hospitalization, Other)
  Sender: FDA-Public Use
  Company Number: CLOF-1000814

PATIENT
  Age: 66 Year
  Sex: Female

DRUGS (2)
  1. EVOLTRA      (CLOFARABINE) SOLUTION FOR INFUSION, UNK [Suspect]
     Indication: ACUTE MYELOID LEUKAEMIA
  2. MYLOTARG         (GEMTUZUMAB OZOGAMICIN) SOLUTION [Suspect]
     Indication: ACUTE MYELOID LEUKAEMIA

REACTIONS (3)
  - CYTOMEGALOVIRUS CHORIORETINITIS [None]
  - EYE INFECTION TOXOPLASMAL [None]
  - NECROTISING RETINITIS [None]
